FAERS Safety Report 12446977 (Version 3)
Quarter: 2016Q2

REPORT INFORMATION
  Report Type: Report from Study
  Country: AR (occurrence: AR)
  Receive Date: 20160608
  Receipt Date: 20160621
  Transmission Date: 20160815
  Serious: Yes (Other)
  Sender: FDA-Public Use
  Company Number: PHHY2016AR076138

PATIENT
  Sex: Female

DRUGS (4)
  1. ULTIBRO BREEZHALER [Suspect]
     Active Substance: GLYCOPYRRONIUM\INDACATEROL
     Indication: AGITATION
     Dosage: ONLY USED IT WHEN SHE GOT OUT OF HIS HOUSE
     Route: 065
  2. ENALAPRIL [Suspect]
     Active Substance: ENALAPRIL
     Indication: HYPERTENSION
     Route: 065
  3. LOSARTAN. [Concomitant]
     Active Substance: LOSARTAN
     Indication: HYPERTENSION
     Dosage: UNK
     Route: 065
  4. ULTIBRO BREEZHALER [Suspect]
     Active Substance: GLYCOPYRRONIUM\INDACATEROL
     Indication: RESPIRATORY DISORDER
     Dosage: 1 DF, QD (STARTED 6 MONTHS AGO)
     Route: 065

REACTIONS (8)
  - Lung disorder [Unknown]
  - Lower limb fracture [Unknown]
  - Off label use [Unknown]
  - Dyspnoea [Recovering/Resolving]
  - Drug dependence [Unknown]
  - Tachycardia [Recovering/Resolving]
  - Blood pressure increased [Unknown]
  - Cough [Unknown]

NARRATIVE: CASE EVENT DATE: 2013
